FAERS Safety Report 5706336-6 (Version None)
Quarter: 2008Q2

REPORT INFORMATION
  Report Type: 
  Country: None (occurrence: None)
  Receive Date: 20080404
  Receipt Date: 20080205
  Transmission Date: 20081010
  Serious: Yes (Hospitalization)
  Sender: FDA-Public Use
  Company Number: OSCN-PR-0801S-0047

PATIENT
  Age: 52 Year
  Sex: Female
  Weight: 97.5234 kg

DRUGS (1)
  1. OMNISCAN [Suspect]
     Indication: VISUAL DISTURBANCE
     Dosage: 20 ML, SINGLE DOSE, I.V.
     Route: 042
     Dates: start: 20080124, end: 20080124

REACTIONS (1)
  - CHEST PAIN [None]
